FAERS Safety Report 8338380-7 (Version None)
Quarter: 2012Q2

REPORT INFORMATION
  Report Type: 
  Country: None (occurrence: None)
  Receive Date: 20120504
  Receipt Date: 20120423
  Transmission Date: 20120825
  Serious: Yes (Other)
  Sender: FDA-Public Use
  Company Number: US-BRISTOL-MYERS SQUIBB COMPANY-16507568

PATIENT
  Age: 60 Year
  Sex: Male

DRUGS (23)
  1. LISINOPRIL [Concomitant]
  2. GREEN TEA [Concomitant]
  3. BLEPHAMIDE [Concomitant]
     Dosage: OPTH SUSPENSION
     Route: 047
  4. PUMPKIN SEED OIL [Concomitant]
  5. PROTONIX [Concomitant]
     Dosage: 40 MG
  6. FISH OIL [Concomitant]
  7. NORVIR [Concomitant]
  8. METOPROLOL TARTRATE [Concomitant]
  9. AMITRIPTYLINE HCL [Concomitant]
  10. ADVAIR DISKUS 100/50 [Concomitant]
     Dosage: 1DF= 100/50
  11. TRIAMCINOLONE ACETONIDE [Concomitant]
     Dosage: 0.1% OINTMENT
  12. GINGER [Concomitant]
  13. REYATAZ [Suspect]
     Indication: HIV INFECTION
     Dosage: START DATE 04JAN12
     Route: 048
     Dates: start: 20111205
  14. ASPIRIN [Concomitant]
     Dosage: SAFETY COATED
  15. MUPIROCIN [Concomitant]
     Dosage: OINTMENT
  16. KETOCONAZOLE [Concomitant]
     Dosage: OINTMENT
  17. SAW PALMETTO [Concomitant]
  18. ATRIPLA [Concomitant]
  19. CLARINEX [Concomitant]
  20. NIASPAN [Concomitant]
  21. ZETIA [Concomitant]
  22. NASONEX [Concomitant]
  23. LOPROX [Concomitant]
     Dosage: 1% SHAMPOO

REACTIONS (3)
  - VIRAL LOAD INCREASED [None]
  - CD4 LYMPHOCYTES DECREASED [None]
  - HEADACHE [None]
